FAERS Safety Report 16783957 (Version 1)
Quarter: 2019Q3

REPORT INFORMATION
  Report Type: Spontaneous
  Country: US (occurrence: US)
  Receive Date: 20190909
  Receipt Date: 20190909
  Transmission Date: 20191005
  Serious: No
  Sender: FDA-Public Use
  Company Number: US-AMGEN-USASP2019141607

PATIENT
  Age: 85 Year
  Sex: Male

DRUGS (1)
  1. IMLYGIC [Suspect]
     Active Substance: TALIMOGENE LAHERPAREPVEC
     Indication: MALIGNANT MELANOMA
     Dosage: 1 MILLILITER (1ML OF 10^8 PFU INTO ONE LESION)
     Route: 026
     Dates: start: 201906

REACTIONS (5)
  - Malaise [Unknown]
  - Weight decreased [Unknown]
  - Asthenia [Unknown]
  - Early satiety [Unknown]
  - Nausea [Unknown]

NARRATIVE: CASE EVENT DATE: 20190809
